FAERS Safety Report 8962391 (Version 1)
Quarter: 2012Q4

REPORT INFORMATION
  Report Type: Spontaneous
  Country: TR (occurrence: None)
  Receive Date: 20120905
  Receipt Date: 20120905
  Transmission Date: 20130627
  Serious: Yes (Other)
  Sender: FDA-Public Use
  Company Number: DSA_59098_2012

PATIENT
  Age: 71 Year
  Sex: Female

DRUGS (5)
  1. METRONIDAZOLE (METRONIDAZOLE) [Suspect]
     Indication: PNEUMONIA
     Dosage: DF
     Route: 042
  2. DIURETICS [Concomitant]
  3. ACE INHIBITORS [Concomitant]
  4. OMEPRAZOLE [Concomitant]
  5. BRONCHODILATORS [Concomitant]

REACTIONS (3)
  - Electrocardiogram QT prolonged [None]
  - Electrocardiogram QT prolonged [None]
  - Electrocardiogram T wave inversion [None]
